FAERS Safety Report 23919854 (Version 2)
Quarter: 2024Q2

REPORT INFORMATION
  Report Type: Spontaneous
  Country: CN (occurrence: CN)
  Receive Date: 20240530
  Receipt Date: 20240531
  Transmission Date: 20240716
  Serious: Yes (Other)
  Sender: FDA-Public Use
  Company Number: CN-JNJFOC-20240575651

PATIENT
  Age: 80 Year
  Sex: Male
  Weight: 70 kg

DRUGS (8)
  1. CHILDRENS MOTRIN [Suspect]
     Active Substance: IBUPROFEN
     Indication: Symptomatic treatment
     Route: 048
     Dates: start: 20240316, end: 20240316
  2. CHILDRENS MOTRIN [Suspect]
     Active Substance: IBUPROFEN
     Indication: Pyrexia
  3. CELECOXIB [Suspect]
     Active Substance: CELECOXIB
     Indication: Symptomatic treatment
     Route: 048
     Dates: start: 20240315, end: 20240315
  4. CELECOXIB [Suspect]
     Active Substance: CELECOXIB
     Indication: Pain in extremity
     Route: 048
     Dates: start: 20240323, end: 20240323
  5. CELECOXIB [Suspect]
     Active Substance: CELECOXIB
     Route: 048
     Dates: start: 20240325, end: 20240325
  6. CEFTAZIDIME [Suspect]
     Active Substance: CEFTAZIDIME
     Indication: Symptomatic treatment
     Route: 041
     Dates: start: 20240316, end: 20240320
  7. CEFTAZIDIME [Suspect]
     Active Substance: CEFTAZIDIME
     Indication: Cough
  8. CEFTAZIDIME [Suspect]
     Active Substance: CEFTAZIDIME
     Indication: Productive cough

REACTIONS (2)
  - Product administered to patient of inappropriate age [Recovering/Resolving]
  - Renal impairment [Recovering/Resolving]

NARRATIVE: CASE EVENT DATE: 20240316
